FAERS Safety Report 15484187 (Version 1)
Quarter: 2018Q4

REPORT INFORMATION
  Report Type: Spontaneous
  Country: FR (occurrence: FR)
  Receive Date: 20181010
  Receipt Date: 20181010
  Transmission Date: 20190205
  Serious: Yes (Other)
  Sender: FDA-Public Use
  Company Number: FR-ALLERGAN-1813893US

PATIENT
  Age: 85 Year
  Sex: Male

DRUGS (1)
  1. MORPHINE SULFATE UNK [Suspect]
     Active Substance: MORPHINE SULFATE
     Indication: WOUND COMPLICATION
     Dosage: HIGH DOSES, QD
     Route: 065

REACTIONS (2)
  - Hallucination [Unknown]
  - Delirium [Unknown]
